FAERS Safety Report 16844609 (Version 1)
Quarter: 2019Q3

REPORT INFORMATION
  Report Type: Spontaneous
  Country: US (occurrence: US)
  Receive Date: 20190802
  Receipt Date: 20190802
  Transmission Date: 20191005
  Serious: No
  Sender: FDA-Public Use
  Company Number: None

PATIENT

DRUGS (2)
  1. LITHIUM CARBONATE. [Suspect]
     Active Substance: LITHIUM CARBONATE
  2. LITHIUM CARBONATE EXTENDED RELEASE [Suspect]
     Active Substance: LITHIUM CARBONATE

REACTIONS (1)
  - Product dispensing error [None]
